FAERS Safety Report 15962807 (Version 2)
Quarter: 2019Q3

REPORT INFORMATION
  Report Type: Report from Study
  Country: US (occurrence: US)
  Receive Date: 20190214
  Receipt Date: 20190923
  Transmission Date: 20191004
  Serious: Yes (Hospitalization)
  Sender: FDA-Public Use
  Company Number: US-BAUSCH-BL-2019-004656

PATIENT
  Age: 65 Year
  Sex: Male

DRUGS (2)
  1. XIFAXAN [Suspect]
     Active Substance: RIFAXIMIN
     Indication: HEPATIC CIRRHOSIS
  2. XIFAXAN [Suspect]
     Active Substance: RIFAXIMIN
     Indication: HEPATIC ENCEPHALOPATHY
     Route: 048
     Dates: start: 201810, end: 20190202

REACTIONS (5)
  - Ammonia increased [Unknown]
  - Insurance issue [Unknown]
  - Hospitalisation [Recovered/Resolved]
  - Therapy cessation [Unknown]
  - Product distribution issue [Unknown]

NARRATIVE: CASE EVENT DATE: 201810
